FAERS Safety Report 8420556 (Version 2)
Quarter: 2013Q1

REPORT INFORMATION
  Report Type: Spontaneous
  Country: None (occurrence: DK)
  Receive Date: 20120222
  Receipt Date: 20130314
  Transmission Date: 20140127
  Serious: Yes (Death, Hospitalization, Other)
  Sender: FDA-Public Use
  Company Number: DK-BAXTER-2012BH004331

PATIENT
  Age: 64 Year
  Sex: Male

DRUGS (8)
  1. CYTOXAN TABLETS (CYCLOPHOSPHAMIDE TABLETS, USP) [Suspect]
     Indication: CHRONIC LYMPHOCYTIC LEUKAEMIA
     Route: 048
     Dates: start: 20070220, end: 20070529
  2. MABTHERA [Suspect]
     Indication: CHRONIC LYMPHOCYTIC LEUKAEMIA REFRACTORY
     Dosage: 230 (UNITS NOT REPORTED)
     Route: 042
     Dates: start: 20070220, end: 20070314
  3. MABTHERA [Suspect]
     Indication: HAEMOLYSIS
     Route: 042
     Dates: start: 20090628, end: 20091117
  4. MABTHERA [Suspect]
     Route: 042
     Dates: start: 20100714, end: 20110719
  5. CHLORAMBUCIL [Concomitant]
     Indication: CHRONIC LYMPHOCYTIC LEUKAEMIA
     Route: 048
     Dates: start: 20021104, end: 20040906
  6. CHLORAMBUCIL [Concomitant]
     Route: 065
     Dates: start: 20090602, end: 20110816
  7. PREDNISOLONE [Concomitant]
     Indication: HAEMOLYSIS
     Route: 048
     Dates: start: 20030416, end: 20030910
  8. LEUKERAN [Concomitant]
     Indication: PRODUCT USED FOR UNKNOWN INDICATION
     Route: 065
     Dates: start: 2002

REACTIONS (1)
  - Progressive multifocal leukoencephalopathy [Fatal]
